FAERS Safety Report 5947374-8 (Version None)
Quarter: 2008Q4

REPORT INFORMATION
  Report Type: 
  Country: None (occurrence: None)
  Receive Date: 20081110
  Receipt Date: 20081031
  Transmission Date: 20090506
  Serious: Yes (Other)
  Sender: FDA-Public Use
  Company Number: US-PFIZER INC-2007096300

PATIENT
  Sex: Female

DRUGS (3)
  1. XALATAN [Suspect]
     Indication: GLAUCOMA
     Dates: start: 20050512
  2. XAL-EASE [Suspect]
  3. COSOPT [Concomitant]

REACTIONS (3)
  - CATARACT [None]
  - MALAISE [None]
  - PRODUCT QUALITY ISSUE [None]
